FAERS Safety Report 16208704 (Version 2)
Quarter: 2019Q2

REPORT INFORMATION
  Report Type: Report from Study
  Country: CO (occurrence: CO)
  Receive Date: 20190417
  Receipt Date: 20190518
  Transmission Date: 20190711
  Serious: Yes (Hospitalization, Other)
  Sender: FDA-Public Use
  Company Number: PHHY2018CO086445

PATIENT
  Sex: Male
  Weight: 67 kg

DRUGS (2)
  1. MEKINIST [Suspect]
     Active Substance: TRAMETINIB DIMETHYL SULFOXIDE
     Indication: METASTATIC MALIGNANT MELANOMA
     Dosage: 2 MG, QD
     Route: 048
     Dates: start: 20180309
  2. TAFINLAR [Suspect]
     Active Substance: DABRAFENIB MESYLATE
     Indication: METASTATIC MALIGNANT MELANOMA
     Dosage: 200 MG, QD
     Route: 048
     Dates: start: 20180309

REACTIONS (22)
  - Renal disorder [Unknown]
  - Haemorrhage [Unknown]
  - Diabetes mellitus [Unknown]
  - Eschar [Unknown]
  - Viral infection [Unknown]
  - Constipation [Unknown]
  - Inappropriate schedule of product administration [Unknown]
  - General physical health deterioration [Unknown]
  - Cardiac disorder [Unknown]
  - Metastases to central nervous system [Unknown]
  - Vomiting [Recovered/Resolved]
  - Speech disorder [Unknown]
  - Metastasis [Unknown]
  - Gastrointestinal disorder [Unknown]
  - Wrong technique in product usage process [Unknown]
  - Weight decreased [Unknown]
  - Eating disorder [Unknown]
  - Depressed mood [Unknown]
  - Visual impairment [Unknown]
  - Asthenia [Unknown]
  - Fatigue [Unknown]
  - Apathy [Unknown]
